FAERS Safety Report 4757988-9 (Version None)
Quarter: 2005Q3

REPORT INFORMATION
  Report Type: 
  Country: None (occurrence: None)
  Receive Date: 20050829
  Receipt Date: 20050811
  Transmission Date: 20060218
  Serious: Yes (Other)
  Sender: FDA-Public Use
  Company Number: 2004-00827

PATIENT
  Age: 44 Year
  Sex: Male
  Weight: 123 kg

DRUGS (13)
  1. VELCADE [Suspect]
     Indication: MULTIPLE MYELOMA
     Dosage: SEE IMAGE
     Dates: start: 20050422, end: 20050519
  2. VELCADE [Suspect]
     Indication: MULTIPLE MYELOMA
     Dosage: SEE IMAGE
     Dates: start: 20040101
  3. DECADRON [Concomitant]
  4. MORPHINE [Concomitant]
  5. ACYCLOVIR [Concomitant]
  6. MS CONTIN [Concomitant]
  7. SKELAXIN [Concomitant]
  8. MORPHINE [Concomitant]
  9. MEGACE [Concomitant]
  10. ZANTAC [Concomitant]
  11. LORAZEPAM [Concomitant]
  12. COMPAZINE [Concomitant]
  13. MULTIVITAMINS (ERGOCALCIFEROL, ASCORBIC ACID, PANTHENOL, NICOTINAMIDE, [Concomitant]

REACTIONS (17)
  - ANAEMIA [None]
  - ASTHENIA [None]
  - BURNING SENSATION [None]
  - CHILLS [None]
  - DIARRHOEA [None]
  - DISEASE PROGRESSION [None]
  - INTERVERTEBRAL DISC DISORDER [None]
  - NASAL CONGESTION [None]
  - NECK PAIN [None]
  - PANCYTOPENIA [None]
  - PARAESTHESIA [None]
  - PRODUCTIVE COUGH [None]
  - PYREXIA [None]
  - RENAL FAILURE [None]
  - RHINORRHOEA [None]
  - SHOULDER PAIN [None]
  - SKIN EXFOLIATION [None]
